FAERS Safety Report 23862266 (Version 1)
Quarter: 2024Q2

REPORT INFORMATION
  Report Type: Spontaneous
  Country: EG (occurrence: EG)
  Receive Date: 20240516
  Receipt Date: 20240516
  Transmission Date: 20240716
  Serious: Yes (Life-Threatening, Disabling, Other)
  Sender: FDA-Public Use
  Company Number: EG-HIKMA PHARMACEUTICALS USA INC.-EG-H14001-24-03958

PATIENT
  Age: 60 Year
  Sex: Female

DRUGS (10)
  1. DOXORUBICIN [Suspect]
     Active Substance: DOXORUBICIN
     Indication: Breast cancer
     Dosage: UNKNOWN (FIRST CYCLE)
     Route: 065
     Dates: start: 20230928, end: 20231221
  2. CARBOPLATIN [Suspect]
     Active Substance: CARBOPLATIN
     Dosage: 500 MILLIGRAM, DILUTED IN 500 ML NORMAL SALINE, OVER ONE HOUR
     Route: 065
  3. CARBOPLATIN [Suspect]
     Active Substance: CARBOPLATIN
     Indication: Breast cancer
     Dosage: 600 MILLIGRAM, DILUTED IN 500 ML NORMAL SALINE, OVER ONE HOUR
     Route: 065
     Dates: start: 20240120
  4. CARBOPLATIN [Suspect]
     Active Substance: CARBOPLATIN
     Dosage: 600 MILLIGRAM, DILUTED IN 500 ML NORMAL SALINE, OVER ONE HOUR
     Route: 065
     Dates: start: 20240210
  5. CYCLOPHOSPHAMIDE [Suspect]
     Active Substance: CYCLOPHOSPHAMIDE
     Indication: Breast cancer
     Dosage: UNKNOWN (FIRST CYCLE)
     Route: 065
     Dates: start: 20230928, end: 20231221
  6. DOCETAXEL [Suspect]
     Active Substance: DOCETAXEL\DOCETAXEL ANHYDROUS
     Dosage: 110 MILLIGRAM, DILUTED IN 250 ML NORMAL SALINE, OVER ONE HOUR
     Route: 065
  7. DOCETAXEL [Suspect]
     Active Substance: DOCETAXEL\DOCETAXEL ANHYDROUS
     Indication: Breast cancer
     Dosage: 130 MILLIGRAM, DILUTED IN 250 ML NORMAL SALINE, OVER ONE HOUR
     Route: 065
     Dates: start: 20240120
  8. DOCETAXEL [Suspect]
     Active Substance: DOCETAXEL\DOCETAXEL ANHYDROUS
     Dosage: 130 MILLIGRAM, DILUTED IN 250 ML NORMAL SALINE, OVER ONE HOUR
     Route: 065
     Dates: start: 20240210
  9. PERTUZUMAB\TRASTUZUMAB [Suspect]
     Active Substance: PERTUZUMAB\TRASTUZUMAB
     Indication: Breast cancer
     Dosage: 600/600 MILLIGRAM
     Route: 058
     Dates: start: 20240120
  10. PERTUZUMAB\TRASTUZUMAB [Suspect]
     Active Substance: PERTUZUMAB\TRASTUZUMAB
     Dosage: 600/600 MILLIGRAM
     Route: 058
     Dates: start: 20240210

REACTIONS (5)
  - Ejection fraction decreased [Not Recovered/Not Resolved]
  - Stomatitis [Not Recovered/Not Resolved]
  - Mucosal inflammation [Not Recovered/Not Resolved]
  - Hypophagia [Not Recovered/Not Resolved]
  - Fatigue [Not Recovered/Not Resolved]

NARRATIVE: CASE EVENT DATE: 20240120
